FAERS Safety Report 6976031-4 (Version None)
Quarter: 2010Q3

REPORT INFORMATION
  Report Type: 
  Country: None (occurrence: None)
  Receive Date: 20100910
  Receipt Date: 20100831
  Transmission Date: 20110219
  Serious: Yes (Other)
  Sender: FDA-Public Use
  Company Number: CHPA2010AU14121

PATIENT
  Sex: Male

DRUGS (2)
  1. NICOTINELL GUM (NCH) [Suspect]
     Indication: COLITIS ULCERATIVE
     Dosage: 4 MG, 1.5 BOXES PER WEEK
     Route: 048
  2. NICOTINELL TTS (NCH) [Suspect]
     Indication: COLITIS ULCERATIVE
     Dosage: UNK, UNK
     Route: 065

REACTIONS (10)
  - COLITIS ULCERATIVE [None]
  - CUSHINGOID [None]
  - DRUG INEFFECTIVE FOR UNAPPROVED INDICATION [None]
  - GASTRIC ULCER [None]
  - INTENTIONAL DRUG MISUSE [None]
  - OFF LABEL USE [None]
  - OVERDOSE [None]
  - THERAPEUTIC RESPONSE UNEXPECTED [None]
  - TREATMENT NONCOMPLIANCE [None]
  - WEIGHT INCREASED [None]
